FAERS Safety Report 24837801 (Version 2)
Quarter: 2025Q3

REPORT INFORMATION
  Report Type: Spontaneous
  Country: CO (occurrence: CO)
  Receive Date: 20250113
  Receipt Date: 20250802
  Transmission Date: 20251021
  Serious: Yes (Hospitalization, Other)
  Sender: ALEXION PHARMACEUTICALS
  Company Number: CO-AstraZeneca-CH-00782966A

PATIENT
  Sex: Female
  Weight: 49 kg

DRUGS (1)
  1. CALQUENCE [Suspect]
     Active Substance: ACALABRUTINIB
     Indication: Leukaemia
     Dosage: 100 MILLIGRAM, Q12H
     Dates: start: 20240815

REACTIONS (2)
  - Hypotension [Recovered/Resolved]
  - Pneumonia [Recovered/Resolved]
